FAERS Safety Report 7429692-X (Version None)
Quarter: 2011Q2

REPORT INFORMATION
  Report Type: 
  Country: None (occurrence: None)
  Receive Date: 20110421
  Receipt Date: 20110414
  Transmission Date: 20111010
  Serious: Yes (Hospitalization)
  Sender: FDA-Public Use
  Company Number: FR-SANOFI-AVENTIS-2011SA023472

PATIENT
  Age: 64 Year
  Sex: Male

DRUGS (10)
  1. LASIX [Concomitant]
  2. DIFFU K [Concomitant]
  3. XYZAL [Concomitant]
  4. REPAGLINIDE [Concomitant]
  5. VENTAVIS [Concomitant]
  6. TRACLEER [Suspect]
     Route: 048
  7. SPIRONOLACTONE [Concomitant]
  8. SIMVASTATIN [Suspect]
  9. PLAVIX [Suspect]
     Route: 048
  10. SILDENAFIL CITRATE [Suspect]
     Route: 048

REACTIONS (1)
  - MICROCYTIC ANAEMIA [None]
